FAERS Safety Report 6877286-7 (Version None)
Quarter: 2010Q3

REPORT INFORMATION
  Report Type: 
  Country: None (occurrence: None)
  Receive Date: 20100714
  Receipt Date: 20100629
  Transmission Date: 20110219
  Serious: Yes (Hospitalization, Other)
  Sender: FDA-Public Use
  Company Number: AECAN201000110

PATIENT
  Age: 36 Month
  Sex: Female
  Weight: 12 kg

DRUGS (10)
  1. GAMUNEX [Suspect]
     Indication: KAWASAKI'S DISEASE
     Dosage: 25 GM; QD; IV
     Route: 042
     Dates: start: 20100402, end: 20100403
  2. GAMUNEX [Suspect]
     Indication: LYMPHADENITIS
     Dosage: 25 GM; QD; IV
     Route: 042
     Dates: start: 20100402, end: 20100403
  3. GAMUNEX [Suspect]
     Indication: KAWASAKI'S DISEASE
     Dosage: 25 GM; QD; IV
     Route: 042
     Dates: start: 20100404, end: 20100404
  4. GAMUNEX [Suspect]
     Indication: LYMPHADENITIS
     Dosage: 25 GM; QD; IV
     Route: 042
     Dates: start: 20100404, end: 20100404
  5. GAMUNEX [Suspect]
  6. CLAVULIN /01000301/ [Concomitant]
  7. CEFUROXIME [Concomitant]
  8. ASPIRIN [Concomitant]
  9. ACETAMINOPHEN [Concomitant]
  10. ADVIL LIQUI-GELS [Concomitant]

REACTIONS (3)
  - BLOOD LACTATE DEHYDROGENASE INCREASED [None]
  - HAEMOLYTIC ANAEMIA [None]
  - TACHYCARDIA [None]
